FAERS Safety Report 5808093-1 (Version None)
Quarter: 2008Q3

REPORT INFORMATION
  Report Type: 
  Country: None (occurrence: None)
  Receive Date: 20080711
  Receipt Date: 20080701
  Transmission Date: 20090109
  Serious: Yes (Hospitalization)
  Sender: FDA-Public Use
  Company Number: FR-PFIZER INC-2008055250

PATIENT
  Sex: Female

DRUGS (7)
  1. ALDACTONE [Suspect]
     Route: 048
  2. FLUINDIONE [Concomitant]
  3. TRANDATE [Concomitant]
  4. LASIX [Concomitant]
  5. MONICOR [Concomitant]
  6. ZOPICLONE [Concomitant]
  7. MIANSERIN [Concomitant]

REACTIONS (1)
  - DERMATITIS BULLOUS [None]
